FAERS Safety Report 9456534 (Version 1)
Quarter: 2013Q3

REPORT INFORMATION
  Report Type: Spontaneous
  Country: GB (occurrence: None)
  Receive Date: 20130809
  Receipt Date: 20130809
  Transmission Date: 20140515
  Serious: Yes (Other)
  Sender: FDA-Public Use
  Company Number: GER/UKI/13/0033817

PATIENT
  Age: 51 Year
  Sex: Male

DRUGS (1)
  1. AMLODIPINE (AMLODIPINE) [Suspect]
     Indication: HYPERTENSION
     Route: 048
     Dates: start: 20090602, end: 20130718

REACTIONS (6)
  - Disturbance in attention [None]
  - Asthenia [None]
  - Exercise tolerance decreased [None]
  - Fatigue [None]
  - Irritability [None]
  - Muscle spasms [None]
